FAERS Safety Report 4707184-6 (Version None)
Quarter: 2005Q3

REPORT INFORMATION
  Report Type: 
  Country: None (occurrence: None)
  Receive Date: 20050701
  Receipt Date: 20050616
  Transmission Date: 20060218
  Serious: Yes (Death, Life-Threatening, Hospitalization)
  Sender: FDA-Public Use
  Company Number: 2005EU000845

PATIENT
  Age: 51 Year
  Sex: Male

DRUGS (1)
  1. FK506 (TACROLIMUS CAPSULES) CAPSULE [Suspect]
     Indication: LIVER TRANSPLANT
     Dosage: 7.00 MG, , ORAL
     Route: 048
     Dates: start: 20040501

REACTIONS (5)
  - CARDIAC FAILURE [None]
  - GRAFT VERSUS HOST DISEASE [None]
  - NOCARDIOSIS [None]
  - RESPIRATORY DISTRESS [None]
  - SEPSIS [None]
